FAERS Safety Report 20770815 (Version 1)
Quarter: 2022Q2

REPORT INFORMATION
  Report Type: Spontaneous
  Country: US (occurrence: US)
  Receive Date: 20220429
  Receipt Date: 20220429
  Transmission Date: 20220721
  Serious: No
  Sender: FDA-Public Use
  Company Number: US-JNJFOC-20220449249

PATIENT
  Sex: Female

DRUGS (1)
  1. TOPAMAX [Suspect]
     Active Substance: TOPIRAMATE
     Indication: Migraine
     Route: 048

REACTIONS (6)
  - Amnesia [Unknown]
  - Irritability [Unknown]
  - Abnormal behaviour [Unknown]
  - Nonspecific reaction [Unknown]
  - Off label use [Unknown]
  - Incorrect dose administered [Unknown]
